FAERS Safety Report 6218616-9 (Version None)
Quarter: 2009Q2

REPORT INFORMATION
  Report Type: 
  Country: None (occurrence: None)
  Receive Date: 20090608
  Receipt Date: 20090601
  Transmission Date: 20091009
  Serious: Yes (Hospitalization, Congenital Anomaly)
  Sender: FDA-Public Use
  Company Number: AR-AVENTIS-200911057GDDC

PATIENT
  Sex: Male

DRUGS (2)
  1. LANTUS [Suspect]
     Indication: DIABETIC RELATIVE
     Route: 064
  2. APIDRA [Suspect]
     Indication: DIABETIC RELATIVE
     Route: 064

REACTIONS (4)
  - ABDOMINAL DISTENSION [None]
  - DRUG EXPOSURE DURING PREGNANCY [None]
  - HYPOGLYCAEMIA [None]
  - OESOPHAGEAL ATRESIA [None]
